FAERS Safety Report 6839546-5 (Version None)
Quarter: 2010Q3

REPORT INFORMATION
  Report Type: 
  Country: None (occurrence: None)
  Receive Date: 20100714
  Receipt Date: 20100121
  Transmission Date: 20110219
  Serious: No
  Sender: FDA-Public Use
  Company Number: A0840747A

PATIENT
  Age: 35 Year
  Sex: Male

DRUGS (3)
  1. FLOVENT [Suspect]
     Dosage: 2PUFF TWICE PER DAY
     Route: 055
     Dates: start: 20070101
  2. ANTIDEPRESSANT [Concomitant]
     Indication: HEADACHE
  3. NORTRIPTYLINE [Concomitant]

REACTIONS (5)
  - FACIAL PAIN [None]
  - FATIGUE [None]
  - HEAD DISCOMFORT [None]
  - MYALGIA [None]
  - VASODILATATION [None]
